FAERS Safety Report 6522293-7 (Version None)
Quarter: 2009Q4

REPORT INFORMATION
  Report Type: 
  Country: None (occurrence: None)
  Receive Date: 20091230
  Receipt Date: 20091223
  Transmission Date: 20100525
  Serious: Yes (Death, Hospitalization)
  Sender: FDA-Public Use
  Company Number: A0836713A

PATIENT
  Age: 72 Year
  Sex: Male

DRUGS (3)
  1. ADVAIR DISKUS 100/50 [Suspect]
     Indication: ASTHMA
  2. INHALER [Concomitant]
  3. CHOLESTEROL REDUCING AGENT [Concomitant]

REACTIONS (2)
  - DEATH [None]
  - MYOCARDIAL INFARCTION [None]
